FAERS Safety Report 8410788-0 (Version None)
Quarter: 2012Q2

REPORT INFORMATION
  Report Type: 
  Country: None (occurrence: None)
  Receive Date: 20120605
  Receipt Date: 20120529
  Transmission Date: 20120825
  Serious: Yes (Hospitalization, Other)
  Sender: FDA-Public Use
  Company Number: JP-ASTELLAS-2012US005180

PATIENT
  Sex: Male
  Weight: 56 kg

DRUGS (11)
  1. ERLOTINIB HYDROCHLORIDE [Suspect]
     Indication: ADENOCARCINOMA PANCREAS
     Dosage: 100 MG, UID/QD
     Route: 048
     Dates: start: 20120315, end: 20120507
  2. GEMCITABINE HYDROCHLORIDE [Suspect]
     Dosage: 1500 MG/M2, UID/QD
     Route: 041
     Dates: start: 20120428, end: 20120428
  3. MICARDIS [Concomitant]
     Indication: PRODUCT USED FOR UNKNOWN INDICATION
     Dosage: 4 MG, UID/QD
     Route: 065
     Dates: end: 20120316
  4. GEMCITABINE HYDROCHLORIDE [Suspect]
     Indication: ADENOCARCINOMA PANCREAS
     Dosage: 1500 MG/M2, UID/QD
     Route: 041
     Dates: start: 20120315, end: 20120315
  5. GEMCITABINE HYDROCHLORIDE [Suspect]
     Dosage: 1500 MG/M2, UID/QD
     Route: 041
     Dates: start: 20120322, end: 20120322
  6. HUMALOG [Concomitant]
     Indication: PRODUCT USED FOR UNKNOWN INDICATION
     Dosage: 32 IU, UID/QD
     Route: 058
  7. DEXAMETHASONE SODIUM PHOSPHATE [Concomitant]
     Indication: PRODUCT USED FOR UNKNOWN INDICATION
     Dosage: 6.6 MG, UNKNOWN/D
     Route: 042
     Dates: start: 20120315
  8. PRAVASTATIN SODIUM [Concomitant]
     Indication: PRODUCT USED FOR UNKNOWN INDICATION
     Dosage: 10 MG, UID/QD
     Route: 065
  9. GEMCITABINE HYDROCHLORIDE [Suspect]
     Dosage: 1500 MG/M2, UID/QD
     Route: 041
     Dates: start: 20120405, end: 20120405
  10. LANTUS [Concomitant]
     Indication: PRODUCT USED FOR UNKNOWN INDICATION
     Dosage: 4 IU, UID/QD
     Route: 058
  11. GRANISETRON [Concomitant]
     Indication: PRODUCT USED FOR UNKNOWN INDICATION
     Dosage: 3 MG, UNK
     Route: 042
     Dates: start: 20120315

REACTIONS (5)
  - HOSPITALISATION [None]
  - PLATELET COUNT DECREASED [None]
  - NEUTROPHIL COUNT DECREASED [None]
  - DERMATITIS ACNEIFORM [None]
  - CEREBRAL INFARCTION [None]
